FAERS Safety Report 7589958-X (Version None)
Quarter: 2011Q3

REPORT INFORMATION
  Report Type: 
  Country: None (occurrence: None)
  Receive Date: 20110705
  Receipt Date: 20110614
  Transmission Date: 20111222
  Serious: Yes (Hospitalization)
  Sender: FDA-Public Use
  Company Number: A0806447A

PATIENT
  Age: 77 Year
  Sex: Male
  Weight: 98.6 kg

DRUGS (1)
  1. AVANDIA [Suspect]
     Indication: DIABETES MELLITUS
     Dosage: 8MG PER DAY
     Route: 048
     Dates: end: 20060101

REACTIONS (2)
  - AORTIC DISSECTION [None]
  - MYOCARDIAL INFARCTION [None]
